FAERS Safety Report 16470504 (Version 1)
Quarter: 2019Q2

REPORT INFORMATION
  Report Type: Spontaneous
  Country: US (occurrence: US)
  Receive Date: 20190624
  Receipt Date: 20190624
  Transmission Date: 20190711
  Serious: Yes (Hospitalization, Other)
  Sender: FDA-Public Use
  Company Number: PHHY2019US142859

PATIENT

DRUGS (6)
  1. PIBRENTASVIR [Interacting]
     Active Substance: PIBRENTASVIR
     Indication: HEPATITIS VIRAL
     Dosage: 3 DF, QD
     Route: 048
  2. BUDESONIDE. [Suspect]
     Active Substance: BUDESONIDE
     Indication: ASTHMA
     Route: 055
  3. FORMOTEROL [Interacting]
     Active Substance: FORMOTEROL
     Indication: ASTHMA
     Dosage: UNK
     Route: 055
  4. PANTOPRAZOLE [Interacting]
     Active Substance: PANTOPRAZOLE
     Indication: GASTROOESOPHAGEAL REFLUX DISEASE
     Route: 065
  5. GLECAPREVIR [Interacting]
     Active Substance: GLECAPREVIR
     Indication: HEPATITIS VIRAL
     Dosage: 3 DF, QD
     Route: 048
  6. ALBUTEROL. [Interacting]
     Active Substance: ALBUTEROL
     Indication: ASTHMA
     Route: 055

REACTIONS (6)
  - Drug-induced liver injury [Recovering/Resolving]
  - Abdominal pain [Recovering/Resolving]
  - Vomiting [Recovering/Resolving]
  - Fatigue [Recovering/Resolving]
  - Drug interaction [Unknown]
  - Jaundice [Recovering/Resolving]
